FAERS Safety Report 18286420 (Version 2)
Quarter: 2020Q4

REPORT INFORMATION
  Report Type: Spontaneous
  Country: US (occurrence: US)
  Receive Date: 20200920
  Receipt Date: 20201102
  Transmission Date: 20210113
  Serious: Yes (Hospitalization)
  Sender: FDA-Public Use
  Company Number: US-SA-2020SA249262

PATIENT

DRUGS (1)
  1. DUPIXENT [Suspect]
     Active Substance: DUPILUMAB
     Indication: DERMATITIS ATOPIC
     Dosage: 300 MG, QOW, 1 SYRINGE
     Route: 058
     Dates: start: 20190314

REACTIONS (4)
  - Arterial disorder [Unknown]
  - Spinal operation [Unknown]
  - White blood cell count increased [Not Recovered/Not Resolved]
  - Back pain [Not Recovered/Not Resolved]
